FAERS Safety Report 23520019 (Version 1)
Quarter: 2024Q1

REPORT INFORMATION
  Report Type: Spontaneous
  Country: US (occurrence: US)
  Receive Date: 20240214
  Receipt Date: 20240214
  Transmission Date: 20240410
  Serious: No
  Sender: FDA-Public Use
  Company Number: US-ALMIRALL-US-2024-0259

PATIENT
  Age: 61 Year
  Sex: Male

DRUGS (1)
  1. KLISYRI [Suspect]
     Active Substance: TIRBANIBULIN
     Indication: Actinic keratosis
     Route: 061
     Dates: start: 20240122, end: 20240126

REACTIONS (3)
  - Application site dryness [Unknown]
  - Application site pruritus [Unknown]
  - Application site erythema [Unknown]
